FAERS Safety Report 15247838 (Version 2)
Quarter: 2018Q4

REPORT INFORMATION
  Report Type: Spontaneous
  Country: CN (occurrence: CN)
  Receive Date: 20180807
  Receipt Date: 20180810
  Transmission Date: 20190204
  Serious: No
  Sender: FDA-Public Use
  Company Number: CN-JNJFOC-20180800192

PATIENT
  Sex: Male

DRUGS (2)
  1. MOTRIN INFANTS [Suspect]
     Active Substance: IBUPROFEN
     Indication: PYREXIA
     Route: 048
  2. MOTRIN INFANTS [Suspect]
     Active Substance: IBUPROFEN
     Indication: PYREXIA
     Dosage: USES TWO DROPPERS (2.5ML) AT 10:20 AM ON 27-JUL-2018, USED IT AS NEEDED
     Route: 048
     Dates: start: 20180727, end: 20180727

REACTIONS (1)
  - Drug effect incomplete [Unknown]
